FAERS Safety Report 9508205 (Version 2)
Quarter: 2014Q1

REPORT INFORMATION
  Report Type: Spontaneous
  Country: US (occurrence: US)
  Receive Date: 20130909
  Receipt Date: 20140218
  Transmission Date: 20141002
  Serious: Yes (Death, Other)
  Sender: FDA-Public Use
  Company Number: US-PFIZER INC-2013257755

PATIENT
  Age: 82 Year
  Sex: Female
  Weight: 72.56 kg

DRUGS (1)
  1. LYRICA [Suspect]
     Dosage: 50 MG, 4X/DAY
     Route: 048

REACTIONS (2)
  - Death [Fatal]
  - Local swelling [Unknown]
